FAERS Safety Report 23382499 (Version 1)
Quarter: 2024Q1

REPORT INFORMATION
  Report Type: Spontaneous
  Country: US (occurrence: US)
  Receive Date: 20240109
  Receipt Date: 20240109
  Transmission Date: 20240409
  Serious: No
  Sender: FDA-Public Use
  Company Number: US-GALDERMA-US2023019173

PATIENT

DRUGS (1)
  1. DIFFERIN [Suspect]
     Active Substance: ADAPALENE
     Indication: Acne
     Dosage: 1 DOSAGE FORM, ONCE DAILY IN THE EVENING.
     Route: 061
     Dates: start: 20230818

REACTIONS (1)
  - Acne [Not Recovered/Not Resolved]

NARRATIVE: CASE EVENT DATE: 20230101
